FAERS Safety Report 23082861 (Version 2)
Quarter: 2023Q4

REPORT INFORMATION
  Report Type: Spontaneous
  Country: IT (occurrence: IT)
  Receive Date: 20231019
  Receipt Date: 20231117
  Transmission Date: 20240109
  Serious: No
  Sender: FDA-Public Use
  Company Number: None

PATIENT
  Age: 59 Year
  Sex: Female

DRUGS (1)
  1. ACYCLOVIR [Suspect]
     Active Substance: ACYCLOVIR
     Indication: Herpes zoster
     Dosage: 4000 MILLIGRAM DAILY; 800MG CP. 5CP/DAY FOR 7 DAYS
     Dates: start: 20230919, end: 20230925

REACTIONS (5)
  - Diarrhoea [Recovering/Resolving]
  - Middle insomnia [Recovering/Resolving]
  - Nausea [Recovering/Resolving]
  - Faeces discoloured [Recovered/Resolved]
  - Dyspepsia [Recovering/Resolving]

NARRATIVE: CASE EVENT DATE: 20230921
